FAERS Safety Report 6619736-7 (Version None)
Quarter: 2010Q1

REPORT INFORMATION
  Report Type: 
  Country: None (occurrence: None)
  Receive Date: 20100303
  Receipt Date: 20100218
  Transmission Date: 20100710
  Serious: Yes (Hospitalization)
  Sender: FDA-Public Use
  Company Number: 007695

PATIENT
  Sex: Female
  Weight: 88.1 kg

DRUGS (3)
  1. CERTOLIZUMAG PEGOL [Suspect]
     Indication: RHEUMATOID ARTHRITIS
     Dosage: 400 MG 1X/2 WEEKS SUBCUTANEOUS; 200 MG 1X/2 WEEKS SUBCUTANEOUS; 200 MG 1X/2 WEEKS SUBCUTANEOUS
     Route: 058
     Dates: start: 20090127, end: 20100121
  2. METHOTREXATE [Concomitant]
  3. FOLIC ACID [Concomitant]

REACTIONS (14)
  - ABSCESS [None]
  - BURSITIS [None]
  - CELLULITIS [None]
  - ERYTHEMA [None]
  - JOINT RANGE OF MOTION DECREASED [None]
  - NECROSIS [None]
  - OEDEMA PERIPHERAL [None]
  - PAIN [None]
  - PYREXIA [None]
  - SCAB [None]
  - SCRATCH [None]
  - STAPHYLOCOCCAL INFECTION [None]
  - STREPTOCOCCAL INFECTION [None]
  - TENDERNESS [None]
